FAERS Safety Report 7639857-X (Version None)
Quarter: 2011Q3

REPORT INFORMATION
  Report Type: 
  Country: None (occurrence: None)
  Receive Date: 20110727
  Receipt Date: 20110718
  Transmission Date: 20111222
  Serious: Yes (Hospitalization)
  Sender: FDA-Public Use
  Company Number: BR-ASTRAZENECA-2011SE42825

PATIENT
  Age: 62 Year
  Sex: Female
  Weight: 88 kg

DRUGS (5)
  1. CRESTOR [Suspect]
     Indication: HYPERCHOLESTEROLAEMIA
     Route: 048
     Dates: start: 20060101
  2. CARDIZEM [Concomitant]
     Route: 048
  3. ATACAND HCT [Suspect]
     Indication: HYPERTENSION
     Dosage: 16/12.5 MG DAILY
     Route: 048
  4. METFORMIN HCL [Concomitant]
     Indication: TYPE 2 DIABETES MELLITUS
     Route: 048
  5. GLIMEPIRIDE [Concomitant]
     Dosage: TWO TIMES A DAY
     Route: 048

REACTIONS (4)
  - HYPERCHOLESTEROLAEMIA [None]
  - OFF LABEL USE [None]
  - ARTERIAL OCCLUSIVE DISEASE [None]
  - STENT PLACEMENT [None]
